FAERS Safety Report 10013485 (Version 2)
Quarter: 2014Q1

REPORT INFORMATION
  Report Type: Spontaneous
  Country: FR (occurrence: FR)
  Receive Date: 20140314
  Receipt Date: 20140327
  Transmission Date: 20141002
  Serious: Yes (Life-Threatening, Hospitalization)
  Sender: FDA-Public Use
  Company Number: FR-ASTRAZENECA-2014SE17522

PATIENT
  Age: 24434 Day
  Sex: Male

DRUGS (4)
  1. TENORMINE [Suspect]
     Indication: HYPERTENSION
     Route: 048
  2. TENORMINE [Suspect]
     Indication: HYPERTENSION
     Route: 048
     Dates: start: 20140201, end: 20140201
  3. LOXEN [Suspect]
     Route: 048
  4. LOXEN [Suspect]
     Route: 048
     Dates: start: 20140201, end: 20140201

REACTIONS (3)
  - Vasoplegia syndrome [Recovered/Resolved]
  - Cardiogenic shock [Recovered/Resolved]
  - Intentional drug misuse [Unknown]
